FAERS Safety Report 9286701 (Version 2)
Quarter: 2013Q2

REPORT INFORMATION
  Report Type: Spontaneous
  Country: US (occurrence: US)
  Receive Date: 20130513
  Receipt Date: 20130513
  Transmission Date: 20140414
  Serious: Yes (Death, Other)
  Sender: FDA-Public Use
  Company Number: US-PFIZER INC-2012306595

PATIENT
  Age: 57 Year
  Sex: Female

DRUGS (15)
  1. TRAMADOL HCL [Suspect]
     Dosage: UNK
  2. SKELAXIN [Suspect]
     Dosage: UNK
  3. AMBIEN [Suspect]
     Dosage: UNK
  4. CITALOPRAM [Suspect]
     Dosage: UNK
  5. TEMAZEPAM [Suspect]
     Dosage: UNK
  6. BUTALBITAL [Suspect]
     Dosage: UNK
  7. CARISOPRODOL [Suspect]
     Dosage: UNK
  8. DIPHENHYDRAMINE [Suspect]
     Dosage: UNK
  9. HYDROCODONE [Suspect]
     Dosage: UNK
  10. DIHYDROCODEINE [Suspect]
     Dosage: UNK
  11. NORHYDROCODONE [Suspect]
     Dosage: UNK
  12. OXAZEPAM [Suspect]
     Dosage: UNK
  13. MEPROBAMATE [Suspect]
     Dosage: UNK
  14. ACETAMINOPHEN [Suspect]
     Dosage: UNK
  15. PROMETHAZINE [Suspect]
     Dosage: UNK

REACTIONS (2)
  - Completed suicide [Fatal]
  - Toxicity to various agents [Fatal]
